FAERS Safety Report 8419323-4 (Version None)
Quarter: 2012Q2

REPORT INFORMATION
  Report Type: 
  Country: None (occurrence: None)
  Receive Date: 20120607
  Receipt Date: 20120530
  Transmission Date: 20120825
  Serious: No
  Sender: FDA-Public Use
  Company Number: US-B.I. PHARMACEUTICALS,INC./RIDGEFIELD-2012-BP-12700BP

PATIENT
  Sex: Male

DRUGS (5)
  1. AVODART [Concomitant]
     Indication: BENIGN PROSTATIC HYPERPLASIA
     Dosage: 0.4 MG
     Route: 048
  2. ATACAND [Concomitant]
     Indication: HYPERTENSION
     Route: 048
  3. BYSTOLIC [Concomitant]
     Indication: HYPERTENSION
     Dosage: 5 MG
     Route: 048
  4. TEKTURNA [Concomitant]
     Indication: HYPERTENSION
     Dosage: 150 MG
     Route: 048
  5. FLOMAX [Suspect]
     Indication: BENIGN PROSTATIC HYPERPLASIA
     Dosage: 0.4 MG
     Route: 048
     Dates: start: 20090101

REACTIONS (4)
  - LETHARGY [None]
  - WEIGHT DECREASED [None]
  - DIZZINESS [None]
  - ASTHENIA [None]
